FAERS Safety Report 11942380 (Version 1)
Quarter: 2016Q1

REPORT INFORMATION
  Report Type: Spontaneous
  Country: CA (occurrence: CA)
  Receive Date: 20160125
  Receipt Date: 20160125
  Transmission Date: 20160526
  Serious: Yes (Hospitalization, Other)
  Sender: FDA-Public Use
  Company Number: CA-ROCHE-1697788

PATIENT
  Age: 64 Year
  Sex: Female

DRUGS (5)
  1. PROCARBAZINE [Concomitant]
     Active Substance: PROCARBAZINE
     Dosage: THERAPY DURATION: 5 DAYS
     Route: 048
  2. AVASTIN [Suspect]
     Active Substance: BEVACIZUMAB
     Dosage: THERAPY DURATION: 4.0 WEEKS
     Route: 042
  3. AVASTIN [Suspect]
     Active Substance: BEVACIZUMAB
     Indication: GLIOBLASTOMA MULTIFORME
     Dosage: THERAPY DURATION: ONCE
     Route: 042
  4. AVASTIN [Suspect]
     Active Substance: BEVACIZUMAB
     Dosage: THERAPY DURATION: ONCE
     Route: 042
  5. AVASTIN [Suspect]
     Active Substance: BEVACIZUMAB
     Dosage: THERAPY DURATION: ONCE
     Route: 042

REACTIONS (9)
  - Cerebral artery stenosis [Unknown]
  - Dysarthria [Unknown]
  - Basal ganglia infarction [Unknown]
  - Thrombosis [Unknown]
  - Cerebrovascular accident [Unknown]
  - Fatigue [Unknown]
  - Cerebral infarction [Unknown]
  - Cerebral artery occlusion [Unknown]
  - Facial paralysis [Unknown]
